FAERS Safety Report 23154564 (Version 1)
Quarter: 2023Q4

REPORT INFORMATION
  Report Type: Spontaneous
  Country: CN (occurrence: None)
  Receive Date: 20231107
  Receipt Date: 20231107
  Transmission Date: 20240110
  Serious: Yes (Other)
  Sender: FDA-Public Use
  Company Number: 2023A250330

PATIENT
  Age: 47 Year
  Sex: Female

DRUGS (4)
  1. ESOMEPRAZOLE MAGNESIUM [Suspect]
     Active Substance: ESOMEPRAZOLE\ESOMEPRAZOLE MAGNESIUM\ESOMEPRAZOLE MAGNESIUM DIHYDRATE
     Indication: Helicobacter infection
     Route: 048
     Dates: start: 20231004, end: 20231018
  2. FURAZOLIDONE [Suspect]
     Active Substance: FURAZOLIDONE
     Indication: Helicobacter infection
     Route: 048
     Dates: start: 20231004, end: 20231018
  3. TETRACYCLINE [Suspect]
     Active Substance: TETRACYCLINE
     Indication: Helicobacter infection
     Route: 048
     Dates: start: 20231004, end: 20231018
  4. BISMUTH SUBCITRATE [Suspect]
     Active Substance: BISMUTH SUBCITRATE
     Indication: Helicobacter infection
     Route: 048
     Dates: start: 20231004, end: 20231018

REACTIONS (4)
  - Urticaria [Recovering/Resolving]
  - Syncope [Unknown]
  - Pallor [Unknown]
  - Loss of consciousness [Unknown]

NARRATIVE: CASE EVENT DATE: 20231018
